FAERS Safety Report 4766456-X (Version None)
Quarter: 2005Q3

REPORT INFORMATION
  Report Type: 
  Country: None (occurrence: None)
  Receive Date: 20050912
  Receipt Date: 20050817
  Transmission Date: 20060218
  Serious: Yes (Hospitalization)
  Sender: FDA-Public Use
  Company Number: SE-ROCHE-414694

PATIENT
  Age: 27 Year
  Sex: Female

DRUGS (3)
  1. PEGASYS [Suspect]
     Indication: HEPATITIS C
     Dosage: ROUTE REPORTED AS INJECTION.
     Route: 050
     Dates: start: 20050524, end: 20050812
  2. COPEGUS [Suspect]
     Indication: HEPATITIS C
     Dosage: REGIMEN REPORTED AS 2X2, 1X1 (400MGD MG D).
     Route: 048
     Dates: start: 20050524, end: 20050812
  3. PANOCOD [Concomitant]

REACTIONS (2)
  - HEADACHE [None]
  - PARESIS [None]
